FAERS Safety Report 6455956-2 (Version None)
Quarter: 2009Q4

REPORT INFORMATION
  Report Type: 
  Country: None (occurrence: None)
  Receive Date: 20091119
  Receipt Date: 20091109
  Transmission Date: 20100525
  Serious: Yes (Other)
  Sender: FDA-Public Use
  Company Number: 2009AL007267

PATIENT
  Age: 69 Year
  Sex: Male

DRUGS (6)
  1. HYDROCORTISONE CREAM 1% (OTC) [Suspect]
     Dosage: 1 PCT; BID;
     Route: 061
     Dates: start: 20090922
  2. PIZOTIFEN [Concomitant]
  3. METFORMIN HCL [Concomitant]
  4. EZETIMIBE [Concomitant]
  5. GLICLAZIDE [Concomitant]
  6. DIPROBASE CREAM [Concomitant]

REACTIONS (3)
  - ERYTHEMA [None]
  - OEDEMA PERIPHERAL [None]
  - REACTION TO PRESERVATIVES [None]
